FAERS Safety Report 15787528 (Version 2)
Quarter: 2019Q1

REPORT INFORMATION
  Report Type: Report from Study
  Country: US (occurrence: US)
  Receive Date: 20190103
  Receipt Date: 20190307
  Transmission Date: 20190417
  Serious: Yes (Hospitalization)
  Sender: FDA-Public Use
  Company Number: US-BIOGEN-2018BI00676682

PATIENT
  Age: 69 Year
  Sex: Male

DRUGS (1)
  1. TYSABRI [Suspect]
     Active Substance: NATALIZUMAB
     Indication: MULTIPLE SCLEROSIS
     Route: 050
     Dates: start: 20100428

REACTIONS (5)
  - Cellulitis [Recovered/Resolved]
  - Erythema [Recovered/Resolved]
  - Pyrexia [Recovered/Resolved]
  - Infective myositis [Recovered/Resolved]
  - Accident [Recovered/Resolved]

NARRATIVE: CASE EVENT DATE: 20181127
